FAERS Safety Report 6970401-6 (Version None)
Quarter: 2010Q3

REPORT INFORMATION
  Report Type: 
  Country: None (occurrence: None)
  Receive Date: 20100908
  Receipt Date: 20100827
  Transmission Date: 20110219
  Serious: Yes (Hospitalization)
  Sender: FDA-Public Use
  Company Number: JP-PFIZER INC-2010112151

PATIENT
  Age: 65 Year
  Sex: Female

DRUGS (8)
  1. CELECOX [Suspect]
     Indication: OSTEOARTHRITIS
     Dosage: 100 MG, 2X/DAY
     Route: 048
     Dates: start: 20100809
  2. FAMOTIDINE [Concomitant]
     Dosage: 10 MG, UNK
     Dates: start: 20100809
  3. MYSLEE [Concomitant]
     Dosage: 5 MG, UNK
     Dates: start: 20100809
  4. HYALURONATE SODIUM [Concomitant]
     Dosage: UNK
     Dates: start: 20100809
  5. ASPIRIN [Concomitant]
     Dosage: UNK
     Route: 048
     Dates: start: 20100809
  6. BLOPRESS [Concomitant]
     Dosage: UNK
     Route: 048
     Dates: start: 20100809
  7. CILOSTAZOL [Concomitant]
     Dosage: UNK
     Route: 048
     Dates: start: 20100809
  8. JUVELA [Concomitant]
     Dosage: UNK
     Route: 048
     Dates: start: 20100809

REACTIONS (1)
  - RASH GENERALISED [None]
